FAERS Safety Report 6315133-2 (Version None)
Quarter: 2009Q3

REPORT INFORMATION
  Report Type: 
  Country: None (occurrence: None)
  Receive Date: 20090817
  Receipt Date: 20090805
  Transmission Date: 20100115
  Serious: Yes (Death)
  Sender: FDA-Public Use
  Company Number: GXKR2009IN08920

PATIENT
  Age: 24 Year
  Sex: Female

DRUGS (10)
  1. RIFAMPICIN [Suspect]
     Indication: TUBERCULOSIS
     Dosage: DAILY
  2. ISONIAZID [Suspect]
     Indication: TUBERCULOSIS
     Dosage: DAILY
  3. ETHAMBUTOL HYDROCHLORIDE [Suspect]
     Indication: TUBERCULOSIS
     Dosage: DAILY
  4. AMIKACIN [Suspect]
     Indication: TUBERCULOSIS
  5. CO-AMOXICLAV (NGX) (AMOXICILLIN, CLAVULANATE) [Suspect]
     Indication: TUBERCULOSIS
  6. LEVOFLOXACIN [Suspect]
     Indication: TUBERCULOSIS
  7. PYRAZINAMIDE [Suspect]
     Indication: TUBERCULOSIS
     Dosage: DAILY
  8. CYCLOSERINE [Suspect]
     Indication: TUBERCULOSIS
  9. ETHIONAMIDE (ETHIONAMIDE) [Suspect]
     Indication: TUBERCULOSIS
  10. PAS TAB [Suspect]
     Indication: TUBERCULOSIS

REACTIONS (3)
  - DRUG RESISTANCE [None]
  - PNEUMONECTOMY [None]
  - TUBERCULOSIS [None]
